FAERS Safety Report 10242300 (Version 2)
Quarter: 2014Q3

REPORT INFORMATION
  Report Type: Spontaneous
  Country: US (occurrence: US)
  Receive Date: 20140617
  Receipt Date: 20140702
  Transmission Date: 20150326
  Serious: Yes (Death)
  Sender: FDA-Public Use
  Company Number: US-PFIZER INC-2014162093

PATIENT
  Age: 61 Year
  Sex: Male

DRUGS (2)
  1. LEVOTHROID [Concomitant]
     Active Substance: LEVOTHYROXINE SODIUM
     Dosage: 100 UG, UNK
  2. INLYTA [Suspect]
     Active Substance: AXITINIB
     Indication: NEOPLASM MALIGNANT
     Dosage: 5 MG, UNK
     Dates: start: 201307

REACTIONS (1)
  - Death [Fatal]

NARRATIVE: CASE EVENT DATE: 20140611
